FAERS Safety Report 9267192 (Version 2)
Quarter: 2013Q2

REPORT INFORMATION
  Report Type: Report from Study
  Country: JP (occurrence: JP)
  Receive Date: 20130502
  Receipt Date: 20130520
  Transmission Date: 20140414
  Serious: Yes (Hospitalization)
  Sender: FDA-Public Use
  Company Number: JP-EISAI INC-E7389-03791-CLI-JP

PATIENT
  Age: 57 Year
  Sex: Male
  Weight: 79 kg

DRUGS (11)
  1. E7389 (BOLD) [Suspect]
     Indication: NON-SMALL CELL LUNG CANCER
     Dosage: UNKNOWN
     Route: 041
     Dates: start: 20120223, end: 20130410
  2. E7389 (BOLD) [Suspect]
     Dosage: UNKNOWN
     Route: 041
     Dates: start: 20130508
  3. ROHYPNOL [Concomitant]
     Indication: INSOMNIA
     Route: 048
     Dates: start: 20120229
  4. EPADEL S [Concomitant]
     Indication: HYPERLIPIDAEMIA
     Route: 048
     Dates: start: 20130416, end: 20130427
  5. ZETIA [Concomitant]
     Indication: HYPERLIPIDAEMIA
     Route: 048
     Dates: start: 20120508
  6. FLIVAS OD [Concomitant]
     Indication: CALCULUS URETERIC
     Route: 048
     Dates: start: 20120921
  7. EVIPROSTAT [Concomitant]
     Indication: CALCULUS URETERIC
     Route: 048
     Dates: start: 20120921
  8. RED GINSENG [Concomitant]
     Indication: FATIGUE
     Route: 048
     Dates: start: 201109, end: 20130427
  9. CHOREITO [Concomitant]
     Indication: CALCULUS URETERIC
     Route: 048
     Dates: start: 199503, end: 20130427
  10. JUZENTAIHOTO [Concomitant]
     Indication: FATIGUE
     Route: 048
     Dates: start: 201109, end: 20130427
  11. MAGMITT [Concomitant]
     Indication: CALCULUS URETERIC
     Dosage: UNKNOWN
     Route: 048
     Dates: start: 20120921

REACTIONS (1)
  - Myocardial ischaemia [Not Recovered/Not Resolved]
